FAERS Safety Report 7538268-5 (Version None)
Quarter: 2011Q2

REPORT INFORMATION
  Report Type: 
  Country: None (occurrence: None)
  Receive Date: 20110609
  Receipt Date: 20020709
  Transmission Date: 20111010
  Serious: Yes (Death)
  Sender: FDA-Public Use
  Company Number: PHEH2002US06217

PATIENT
  Sex: Female

DRUGS (10)
  1. DIGOXIN [Concomitant]
     Dosage: 0.125 MG, UNK
  2. LASIX [Concomitant]
  3. VASOTEC [Concomitant]
  4. AUGMENTIN '125' [Concomitant]
     Dosage: 875 MG, BID
     Dates: start: 20020321, end: 20020331
  5. MULTIVITAMINS, COMBINATIONS [Concomitant]
  6. CIPRO [Concomitant]
     Dosage: 500 MG, BID
     Dates: start: 20020401
  7. ASPIRIN [Concomitant]
  8. CLOZAPINE [Suspect]
     Indication: DEMENTIA
     Dosage: 6.25 MG, BID
     Route: 048
     Dates: start: 20011113
  9. BISACODYL [Concomitant]
     Indication: CONSTIPATION
     Dosage: UNK, UNK
  10. TYLENOL-500 [Concomitant]

REACTIONS (1)
  - DEATH [None]
